FAERS Safety Report 5148294-1 (Version None)
Quarter: 2006Q4

REPORT INFORMATION
  Report Type: 
  Country: None (occurrence: None)
  Receive Date: 20061106
  Receipt Date: 20061023
  Transmission Date: 20070319
  Serious: Yes (Death, Other)
  Sender: FDA-Public Use
  Company Number: CLOF-10351

PATIENT
  Age: 11 Year
  Sex: Female
  Weight: 27.3 kg

DRUGS (3)
  1. CLOLAR [Suspect]
     Indication: ACUTE LYMPHOCYTIC LEUKAEMIA
     Dosage: 53.04 MG QD X 5 IV
     Route: 042
     Dates: start: 20061014, end: 20061018
  2. MORPHINE [Concomitant]
  3. ANTIMETICS [Concomitant]

REACTIONS (4)
  - BLOOD BILIRUBIN INCREASED [None]
  - FEBRILE NEUTROPENIA [None]
  - OCULAR HYPERAEMIA [None]
  - PALMAR-PLANTAR ERYTHRODYSAESTHESIA SYNDROME [None]
